FAERS Safety Report 5771557-3 (Version None)
Quarter: 2008Q2

REPORT INFORMATION
  Report Type: 
  Country: None (occurrence: None)
  Receive Date: 20080613
  Receipt Date: 20080610
  Transmission Date: 20081010
  Serious: Yes (Life-Threatening, Hospitalization, Other)
  Sender: FDA-Public Use
  Company Number: FR-BAYER-200819618GPV

PATIENT
  Age: 8 Year
  Sex: Male
  Weight: 23 kg

DRUGS (3)
  1. ADALAT [Suspect]
     Indication: HYPERTENSION
     Route: 048
     Dates: start: 20080426, end: 20080430
  2. TEGELINE [Suspect]
     Indication: GUILLAIN-BARRE SYNDROME
     Route: 042
     Dates: start: 20080425, end: 20080429
  3. SECTRAL [Suspect]
     Indication: HYPERTENSION
     Route: 048
     Dates: start: 20080430

REACTIONS (2)
  - CEREBRAL ISCHAEMIA [None]
  - TONIC CONVULSION [None]
